FAERS Safety Report 25167898 (Version 2)
Quarter: 2025Q3

REPORT INFORMATION
  Report Type: Report from Study
  Country: ZA (occurrence: ZA)
  Receive Date: 20250407
  Receipt Date: 20250803
  Transmission Date: 20251021
  Serious: Yes (Other)
  Sender: ALEXION PHARMACEUTICALS
  Company Number: ZA-AstraZeneca-CH-00838653A

PATIENT
  Age: 83 Year
  Sex: Female

DRUGS (9)
  1. DAPAGLIFLOZIN [Suspect]
     Active Substance: DAPAGLIFLOZIN
     Indication: Diabetes mellitus
  2. CLOBAZAM [Concomitant]
     Active Substance: CLOBAZAM
     Indication: Anxiety
  3. PREGABALIN [Concomitant]
     Active Substance: PREGABALIN
     Indication: Epilepsy
  4. Amloc [Concomitant]
     Indication: Hypertension
  5. ATORVASTATIN [Concomitant]
     Active Substance: ATORVASTATIN
     Indication: Blood cholesterol
  6. GLUCOPHAGE XR [Concomitant]
     Active Substance: METFORMIN HYDROCHLORIDE
     Indication: Diabetes mellitus
  7. DEXILANT [Concomitant]
     Active Substance: DEXLANSOPRAZOLE
  8. LEVOTHYROXINE [Concomitant]
     Active Substance: LEVOTHYROXINE
     Indication: Hypothyroidism
  9. Cinadil [Concomitant]
     Indication: Nausea

REACTIONS (1)
  - Neoplasm malignant [Unknown]
